FAERS Safety Report 23877229 (Version 2)
Quarter: 2024Q2

REPORT INFORMATION
  Report Type: Spontaneous
  Country: JP (occurrence: JP)
  Receive Date: 20240521
  Receipt Date: 20240626
  Transmission Date: 20240716
  Serious: Yes (Other)
  Sender: FDA-Public Use
  Company Number: JP-GILEAD-2024-0673182

PATIENT
  Age: 73 Year
  Sex: Female

DRUGS (1)
  1. VEMLIDY [Suspect]
     Active Substance: TENOFOVIR ALAFENAMIDE FUMARATE
     Indication: Hepatitis B
     Dosage: UNK
     Route: 048

REACTIONS (3)
  - Hepatic encephalopathy [Unknown]
  - Depressed level of consciousness [Not Recovered/Not Resolved]
  - Dysphagia [Not Recovered/Not Resolved]
